FAERS Safety Report 6157647-4 (Version None)
Quarter: 2009Q2

REPORT INFORMATION
  Report Type: 
  Country: None (occurrence: None)
  Receive Date: 20090414
  Receipt Date: 20090414
  Transmission Date: 20091009
  Serious: Yes (Disabling)
  Sender: FDA-Public Use
  Company Number: None

PATIENT
  Age: 46 Year
  Sex: Female
  Weight: 68.0396 kg

DRUGS (1)
  1. TRIAZOLAM [Suspect]
     Indication: TOOTH DISORDER
     Dosage: 2 TABLETS ONCE PO
     Route: 048
     Dates: start: 20090408, end: 20090408

REACTIONS (1)
  - UNEVALUABLE EVENT [None]
